FAERS Safety Report 8470305-6 (Version None)
Quarter: 2012Q2

REPORT INFORMATION
  Report Type: 
  Country: None (occurrence: None)
  Receive Date: 20120627
  Receipt Date: 20120621
  Transmission Date: 20120825
  Serious: No
  Sender: FDA-Public Use
  Company Number: US-PFIZER INC-2012150145

PATIENT
  Sex: Female
  Weight: 56.689 kg

DRUGS (5)
  1. ADVIL MIGRAINE LIQUI-GELS [Suspect]
     Indication: HEADACHE
     Dosage: 200 MG, ONCE
     Route: 048
     Dates: start: 20120620, end: 20120621
  2. NAPROXEN SODIUM [Suspect]
     Indication: OSTEOARTHRITIS
     Dosage: 220 MG, UNK
     Route: 048
  3. MOTRIN PM [Suspect]
     Indication: SLEEP DISORDER
     Dosage: 200 MG, UNK
     Route: 048
  4. WARFARIN [Concomitant]
     Dosage: UNK
  5. EXCEDRIN (ASPIRIN/CAFFEINE/PARACETAMOL) [Concomitant]
     Dosage: UNK

REACTIONS (2)
  - SKIN DISORDER [None]
  - ADVERSE DRUG REACTION [None]
